FAERS Safety Report 6661485-3 (Version None)
Quarter: 2010Q1

REPORT INFORMATION
  Report Type: 
  Country: None (occurrence: None)
  Receive Date: 20100331
  Receipt Date: 20100319
  Transmission Date: 20100710
  Serious: Yes (Hospitalization, Disabling, Other)
  Sender: FDA-Public Use
  Company Number: GB-PFIZER INC-2010035399

PATIENT
  Age: 49 Year
  Sex: Female

DRUGS (5)
  1. CYKLOKAPRON [Suspect]
     Indication: MENORRHAGIA
     Dosage: UNK
     Dates: start: 20071201, end: 20090501
  2. AMLODIPINE [Concomitant]
     Dosage: 5 MG, UNK
     Dates: start: 20090301, end: 20090501
  3. DANAZOL [Concomitant]
  4. NICORETTE [Concomitant]
     Dosage: UNK
     Dates: start: 20081101, end: 20091101
  5. NORETHISTERONE [Concomitant]
     Dosage: UNK
     Dates: start: 20081201, end: 20081201

REACTIONS (1)
  - CEREBRAL INFARCTION [None]
